FAERS Safety Report 13113964 (Version 2)
Quarter: 2017Q1

REPORT INFORMATION
  Report Type: Spontaneous
  Country: US (occurrence: US)
  Receive Date: 20170113
  Receipt Date: 20170209
  Transmission Date: 20170428
  Serious: No
  Sender: FDA-Public Use
  Company Number: US-PFIZER INC-2017013669

PATIENT
  Age: 57 Year
  Sex: Male

DRUGS (5)
  1. LORAZEPAM. [Suspect]
     Active Substance: LORAZEPAM
     Indication: HYPERTENSION
     Dosage: 2 DF, DAILY [2 PER DAY]
  2. ATIVAN [Suspect]
     Active Substance: LORAZEPAM
     Indication: SLEEP DISORDER
     Dosage: 1 MG, UNK
  3. VIAGRA [Suspect]
     Active Substance: SILDENAFIL CITRATE
     Indication: ERECTILE DYSFUNCTION
     Dosage: 100 MG, AS NEEDED
  4. XIFAXAN [Suspect]
     Active Substance: RIFAXIMIN
     Indication: ANTIBIOTIC THERAPY
     Dosage: 2 DF, DAILY [2- DAILY]
     Dates: end: 20160616
  5. OXYCODONE [Suspect]
     Active Substance: OXYCODONE
     Indication: BACK PAIN
     Dosage: 20 MG, 4X/DAY

REACTIONS (2)
  - Blood count abnormal [Unknown]
  - Dehydration [Unknown]
